FAERS Safety Report 22185837 (Version 1)
Quarter: 2023Q2

REPORT INFORMATION
  Report Type: Spontaneous
  Country: US (occurrence: None)
  Receive Date: 20230406
  Receipt Date: 20230406
  Transmission Date: 20230721
  Serious: Yes (Other)
  Sender: FDA-Public Use
  Company Number: None

PATIENT
  Age: 15 Year
  Sex: Male
  Weight: 43.7 kg

DRUGS (5)
  1. NUTROPIN AQ NUSPIN 10 [Suspect]
     Active Substance: SOMATROPIN
     Indication: Growth hormone deficiency
     Dosage: FREQUENCY : DAILY;?
     Route: 058
     Dates: start: 20230330, end: 20230331
  2. NUTROPIN AQ NUSPIN 10 [Suspect]
     Active Substance: SOMATROPIN
     Indication: Short stature
  3. EXONDYS 51 [Concomitant]
     Active Substance: ETEPLIRSEN
     Dates: start: 20150102
  4. EMFLAZA [Concomitant]
     Active Substance: DEFLAZACORT
     Dates: start: 20140102
  5. ZOMETA [Suspect]
     Active Substance: ZOLEDRONIC ACID

REACTIONS (11)
  - Arthralgia [None]
  - Fatigue [None]
  - Headache [None]
  - Back pain [None]
  - Pain in extremity [None]
  - Arthralgia [None]
  - Oropharyngeal pain [None]
  - Flushing [None]
  - Asthenia [None]
  - Throat irritation [None]
  - Rash [None]

NARRATIVE: CASE EVENT DATE: 20230401
